FAERS Safety Report 20417331 (Version 2)
Quarter: 2022Q1

REPORT INFORMATION
  Report Type: Spontaneous
  Country: FR (occurrence: FR)
  Receive Date: 20220202
  Receipt Date: 20220204
  Transmission Date: 20220424
  Serious: Yes (Hospitalization)
  Sender: FDA-Public Use
  Company Number: FR-ANIPHARMA-2022-FR-000023

PATIENT
  Age: 62 Year
  Sex: Male
  Weight: 101 kg

DRUGS (7)
  1. CANDESARTAN CILEXETIL [Suspect]
     Active Substance: CANDESARTAN CILEXETIL
     Indication: Hypertension
     Dosage: 8 MG DAILY
     Route: 048
  2. CRESTOR [Suspect]
     Active Substance: ROSUVASTATIN CALCIUM
     Dosage: 10 MG DAILY
     Route: 048
     Dates: end: 2021
  3. ATENOLOL [Suspect]
     Active Substance: ATENOLOL
     Dosage: 50 MG DAILY
     Route: 048
  4. METFORMIN HYDROCHLORIDE [Suspect]
     Active Substance: METFORMIN HYDROCHLORIDE
     Dosage: 1 G DAILY
     Route: 048
  5. TRULICITY [Suspect]
     Active Substance: DULAGLUTIDE
     Dosage: 1 DF WEEK / 1.5 MG WEEK
     Route: 058
     Dates: start: 20210430
  6. ATORVASTATIN [Concomitant]
     Active Substance: ATORVASTATIN
     Dosage: 10 MG DAILY
     Route: 048
     Dates: start: 2021, end: 20211208
  7. XARELTO [Concomitant]
     Active Substance: RIVAROXABAN
     Dosage: 20 MG DAILY
     Route: 048
     Dates: start: 2021, end: 202112

REACTIONS (1)
  - Haemolytic anaemia [Not Recovered/Not Resolved]

NARRATIVE: CASE EVENT DATE: 20211125
